FAERS Safety Report 24900017 (Version 1)
Quarter: 2025Q1

REPORT INFORMATION
  Report Type: Report from Study
  Country: US (occurrence: US)
  Receive Date: 20250129
  Receipt Date: 20250129
  Transmission Date: 20250409
  Serious: Yes (Other)
  Sender: ABBVIE
  Company Number: US-ABBVIE-6105619

PATIENT
  Sex: Female

DRUGS (1)
  1. BOTOX [Suspect]
     Active Substance: ONABOTULINUMTOXINA
     Indication: Migraine
     Route: 065

REACTIONS (10)
  - Surgery [Unknown]
  - Road traffic accident [Unknown]
  - Anxiety [Unknown]
  - Migraine [Unknown]
  - Post concussion syndrome [Unknown]
  - Photophobia [Unknown]
  - Post-traumatic stress disorder [Unknown]
  - Agoraphobia [Unknown]
  - Panic attack [Unknown]
  - Depression [Unknown]
